FAERS Safety Report 10147027 (Version 3)
Quarter: 2014Q2

REPORT INFORMATION
  Report Type: Spontaneous
  Country: DE (occurrence: DE)
  Receive Date: 20140501
  Receipt Date: 20140604
  Transmission Date: 20141212
  Serious: Yes (Hospitalization)
  Sender: FDA-Public Use
  Company Number: DE-GLAXOSMITHKLINE-D0083780A

PATIENT
  Age: 38 Year
  Sex: Female
  Weight: 62.5 kg

DRUGS (2)
  1. TAFINLAR [Suspect]
     Indication: METASTATIC MALIGNANT MELANOMA
     Dosage: 150MG TWICE PER DAY
     Route: 048
     Dates: start: 20140424
  2. MULTIPLE PAIN MEDICATIONS [Concomitant]
     Route: 065

REACTIONS (5)
  - Haemorrhagic diathesis [Recovered/Resolved]
  - Platelet count decreased [Recovered/Resolved]
  - Tumour lysis syndrome [Recovered/Resolved]
  - Thrombocytopenia [Recovered/Resolved]
  - Prothrombin time prolonged [Recovered/Resolved]
